FAERS Safety Report 5301726-8 (Version None)
Quarter: 2007Q1

REPORT INFORMATION
  Report Type: 
  Country: None (occurrence: None)
  Receive Date: 20070201
  Receipt Date: 20061212
  Transmission Date: 20070707
  Serious: No
  Sender: FDA-Public Use
  Company Number: 2006PV026864

PATIENT
  Age: 64 Year
  Sex: Male

DRUGS (2)
  1. BYETTA [Suspect]
     Indication: DRUG USE FOR UNKNOWN INDICATION
  2. HUMALOG [Suspect]
     Indication: DIABETES MELLITUS
     Dates: start: 20061101

REACTIONS (1)
  - BLOOD GLUCOSE INCREASED [None]
